FAERS Safety Report 19824347 (Version 1)
Quarter: 2021Q3

REPORT INFORMATION
  Report Type: Spontaneous
  Country: US (occurrence: US)
  Receive Date: 20210913
  Receipt Date: 20210913
  Transmission Date: 20211014
  Serious: No
  Sender: FDA-Public Use
  Company Number: US-KALA PHARAMACEUTICALS-2021KLA00066

PATIENT
  Sex: Female
  Weight: 67.12 kg

DRUGS (7)
  1. INVELTYS [Suspect]
     Active Substance: LOTEPREDNOL ETABONATE
     Indication: EYE INFLAMMATION
     Dosage: 1 DROP, 2X/DAY (IN THE MORNING AND AT NIGHT) IN BOTH EYES (^AS MANY AS 3 OR 4 DROPS A DAY)
     Route: 047
     Dates: start: 202103, end: 2021
  2. UNSPECIFIED INGREDIENT [Suspect]
     Active Substance: UNSPECIFIED INGREDIENT
     Dosage: UNK
     Route: 047
     Dates: end: 2021
  3. FML [Suspect]
     Active Substance: FLUOROMETHOLONE
     Indication: DRY EYE
     Route: 047
  4. INVELTYS [Suspect]
     Active Substance: LOTEPREDNOL ETABONATE
     Indication: DRY EYE
     Dosage: UNK, ^USED OTHER BOTTLES OF INVELTYS PREVIOUSLY^
     Route: 047
  5. UNSPECIFIED INGREDIENT [Suspect]
     Active Substance: UNSPECIFIED INGREDIENT
     Indication: DRY EYE
     Dosage: UNK
  6. INVELTYS [Suspect]
     Active Substance: LOTEPREDNOL ETABONATE
     Dosage: 1 DROP, 2X/DAY (IN THE MORNING AND AT NIGHT) IN BOTH EYES (^AS MANY AS 3 OR 4 DROPS A DAY)
     Route: 047
     Dates: start: 2021, end: 2021
  7. FML [Suspect]
     Active Substance: FLUOROMETHOLONE
     Indication: EYE INFLAMMATION

REACTIONS (9)
  - Ocular discomfort [Unknown]
  - Product delivery mechanism issue [Recovered/Resolved]
  - Eye irritation [Unknown]
  - Off label use [Recovered/Resolved]
  - Product dose omission issue [Recovered/Resolved]
  - Asthenopia [Unknown]
  - Visual impairment [Not Recovered/Not Resolved]
  - Eye pain [Unknown]
  - Product container issue [Recovered/Resolved]

NARRATIVE: CASE EVENT DATE: 2021
